FAERS Safety Report 24019392 (Version 4)
Quarter: 2024Q4

REPORT INFORMATION
  Report Type: Spontaneous
  Country: US (occurrence: US)
  Receive Date: 20240627
  Receipt Date: 20241210
  Transmission Date: 20250115
  Serious: Yes (Hospitalization)
  Sender: PFIZER
  Company Number: US-PFIZER INC-202400200805

PATIENT
  Age: 81 Year
  Sex: Female

DRUGS (4)
  1. IBRANCE [Suspect]
     Active Substance: PALBOCICLIB
     Indication: Neoplasm malignant
     Dosage: TAKES FOR 21 DAYS, OFF FOR 7, ONCE A DAY
     Dates: end: 20240219
  2. IBRANCE [Suspect]
     Active Substance: PALBOCICLIB
     Indication: Breast cancer female
     Dosage: 100 MG TAKE ONE TABLET DAILY 1-21 DAYS, 7 DAYS OFF
  3. IBRANCE [Suspect]
     Active Substance: PALBOCICLIB
     Dosage: TAKE 1 TABLET EVERY DAY ON DAYS 1 THROUGH 21 OF EACH 28 DAY CYCLE
     Route: 048
  4. LETROZOLE [Concomitant]
     Active Substance: LETROZOLE
     Indication: Neoplasm malignant
     Dosage: UNK

REACTIONS (5)
  - Bladder catheterisation [Unknown]
  - Gait disturbance [Recovering/Resolving]
  - Neoplasm recurrence [Unknown]
  - General physical health deterioration [Unknown]
  - Illness [Unknown]

NARRATIVE: CASE EVENT DATE: 20210101
